FAERS Safety Report 6945912-X (Version None)
Quarter: 2010Q3

REPORT INFORMATION
  Report Type: 
  Country: None (occurrence: None)
  Receive Date: 20100827
  Receipt Date: 20100819
  Transmission Date: 20110219
  Serious: Yes (Death, Hospitalization)
  Sender: FDA-Public Use
  Company Number: GXKR2010GB04233

PATIENT
  Age: 86 Year
  Sex: Male

DRUGS (20)
  1. ACETAMINOPHEN W/ CODEINE [Suspect]
     Indication: PAIN
     Dosage: 2 DF, QID
     Route: 048
     Dates: start: 20091013, end: 20091018
  2. PARACETAMOL (NCH) [Suspect]
     Indication: PAIN
     Dosage: 1 G, QID
     Route: 048
     Dates: start: 20091018, end: 20091019
  3. PENICILLIN G [Concomitant]
     Indication: PNEUMONIA
     Dosage: 1 DF, QID
     Route: 042
     Dates: start: 20091019, end: 20091021
  4. BISOPROLOL [Concomitant]
     Indication: CARDIAC FAILURE
     Dosage: 2.5 MG, QD
     Route: 048
     Dates: end: 20091021
  5. BUMETANIDE [Concomitant]
     Indication: CARDIAC FAILURE
     Dosage: 2 MG, UNK
     Route: 048
     Dates: start: 20091021
  6. CHLORDIAZEPOXIDE [Concomitant]
     Indication: ALCOHOL WITHDRAWAL SYNDROME
     Dosage: 20 MG, QID
     Route: 048
     Dates: start: 20091020, end: 20091021
  7. CODEINE SULFATE [Concomitant]
     Dosage: 30 MG, QD
     Route: 048
     Dates: start: 20091019, end: 20091019
  8. CYCLIZINE [Concomitant]
     Dosage: 50 MG, QD
     Route: 042
     Dates: start: 20091019, end: 20091021
  9. DIGOXIN [Concomitant]
     Indication: ATRIAL FIBRILLATION
     Dosage: 125 UG, QD
     Route: 048
     Dates: end: 20091018
  10. METRONIDAZOLE [Concomitant]
     Dosage: 500 MG, UNK
     Route: 042
     Dates: start: 20091019
  11. NULYTELY [Concomitant]
     Indication: CONSTIPATION
     Dosage: 1 DF, BID
     Route: 048
     Dates: end: 20091021
  12. OMEPRAZOLE [Concomitant]
     Dosage: 20 MG, QD
     Route: 048
     Dates: end: 20091021
  13. ONDANSETRON [Concomitant]
     Dosage: 4 MG, QD
     Route: 042
     Dates: start: 20091019, end: 20091021
  14. PABRINEX [Concomitant]
     Indication: ALCOHOL WITHDRAWAL SYNDROME
     Dosage: 1 DF, TID
     Route: 042
     Dates: start: 20091019, end: 20091021
  15. RAMIPRIL [Concomitant]
     Indication: CARDIAC FAILURE
     Dosage: 5 MG, QD
     Route: 048
     Dates: end: 20091021
  16. RAMIPRIL [Concomitant]
     Indication: RENAL FAILURE
  17. SIMVASTATIN [Concomitant]
     Indication: HYPERCHOLESTEROLAEMIA
     Dosage: 40 MG, QD
     Route: 048
     Dates: end: 20091021
  18. SPIRONOLACTONE [Concomitant]
     Indication: CARDIAC FAILURE
     Dosage: 12.5 MG, QD
     Route: 048
     Dates: end: 20091021
  19. VITAMIN B GROUP [Concomitant]
     Indication: ALCOHOL WITHDRAWAL SYNDROME
     Dosage: 2 DF, TID
     Route: 048
     Dates: start: 20091020, end: 20091021
  20. ASCORBIC ACID [Concomitant]
     Indication: ALCOHOL WITHDRAWAL SYNDROME
     Dosage: 500 MG, QD
     Route: 048
     Dates: start: 20091020, end: 20091021

REACTIONS (9)
  - ACIDOSIS [None]
  - ALANINE AMINOTRANSFERASE INCREASED [None]
  - ANAEMIA [None]
  - ATRIAL FIBRILLATION [None]
  - HEPATIC NECROSIS [None]
  - OVERDOSE [None]
  - PNEUMONIA [None]
  - UNRESPONSIVE TO STIMULI [None]
  - VOMITING [None]
